FAERS Safety Report 5850972-3 (Version None)
Quarter: 2008Q3

REPORT INFORMATION
  Report Type: 
  Country: None (occurrence: None)
  Receive Date: 20080820
  Receipt Date: 20080814
  Transmission Date: 20090109
  Serious: Yes (Death, Hospitalization)
  Sender: FDA-Public Use
  Company Number: US-ELI_LILLY_AND_COMPANY-US200808002955

PATIENT
  Sex: Male
  Weight: 91.156 kg

DRUGS (13)
  1. PEMETREXED [Suspect]
     Indication: NON-SMALL CELL LUNG CANCER
     Dosage: 500 MG/M2, OTHER
     Route: 042
     Dates: start: 20080728
  2. FOLIC ACID [Concomitant]
     Indication: PREMEDICATION
     Dates: start: 20080721
  3. VITAMIN B-12 [Concomitant]
     Indication: PREMEDICATION
     Dates: start: 20080728
  4. DEXAMETHASONE TAB [Concomitant]
     Indication: PREMEDICATION
     Dosage: 4 MG, 2/D
     Route: 048
     Dates: start: 20080728, end: 20080804
  5. DEXAMETHASONE TAB [Concomitant]
     Dosage: 2 MG, 2/D
     Route: 048
     Dates: start: 20080805
  6. PROTONIX [Concomitant]
     Dosage: 40 MG, DAILY (1/D)
     Route: 048
  7. KEPPRA [Concomitant]
     Dosage: 500 MG, 2/D
     Route: 048
  8. AMBIEN [Concomitant]
     Dosage: 10 MG, EACH EVENING
     Route: 048
  9. MYLANTA [Concomitant]
     Dosage: UNK, AS NEEDED
  10. MULTI-VITAMIN [Concomitant]
     Dosage: 1 D/F, DAILY (1/D)
     Route: 048
  11. MORPHINE [Concomitant]
     Dosage: 30 MG, 2/D
     Route: 048
  12. MORPHINE [Concomitant]
     Dosage: 15 MG, EVERY 4 HRS
     Route: 048
  13. MICARDIS [Concomitant]
     Dosage: 80 MG, DAILY (1/D)
     Route: 048

REACTIONS (2)
  - ARRHYTHMIA SUPRAVENTRICULAR [None]
  - PULMONARY EMBOLISM [None]
